FAERS Safety Report 11029965 (Version 1)
Quarter: 2015Q2

REPORT INFORMATION
  Report Type: Spontaneous
  Country: US (occurrence: US)
  Receive Date: 20150415
  Receipt Date: 20150415
  Transmission Date: 20150821
  Serious: No
  Sender: FDA-Public Use
  Company Number: US-BIOGENIDEC-2015BI030754

PATIENT
  Sex: Female

DRUGS (1)
  1. TECFIDERA [Suspect]
     Active Substance: DIMETHYL FUMARATE
     Indication: MULTIPLE SCLEROSIS
     Dates: start: 2015

REACTIONS (7)
  - Flushing [Not Recovered/Not Resolved]
  - Sunburn [Not Recovered/Not Resolved]
  - Feeling hot [Not Recovered/Not Resolved]
  - Generalised erythema [Not Recovered/Not Resolved]
  - Thermal burn [Not Recovered/Not Resolved]
  - Ephelides [Not Recovered/Not Resolved]
  - Feeling of body temperature change [Not Recovered/Not Resolved]

NARRATIVE: CASE EVENT DATE: 2015
